FAERS Safety Report 22222898 (Version 1)
Quarter: 2023Q2

REPORT INFORMATION
  Report Type: Spontaneous
  Country: US (occurrence: US)
  Receive Date: 20230418
  Receipt Date: 20230418
  Transmission Date: 20230722
  Serious: Yes (Hospitalization)
  Sender: FDA-Public Use
  Company Number: US-STRIDES ARCOLAB LIMITED-2022SP010969

PATIENT
  Age: 19 Year
  Sex: Male

DRUGS (1)
  1. DIAZEPAM [Suspect]
     Active Substance: DIAZEPAM
     Indication: Neuroleptic malignant syndrome
     Dosage: UNK (SCHEDULED)
     Route: 065

REACTIONS (2)
  - Sedation complication [Unknown]
  - Off label use [Unknown]
